FAERS Safety Report 17505627 (Version 3)
Quarter: 2020Q3

REPORT INFORMATION
  Report Type: Spontaneous
  Country: DE (occurrence: DE)
  Receive Date: 20200305
  Receipt Date: 20200807
  Transmission Date: 20201102
  Serious: Yes (Life-Threatening, Other)
  Sender: FDA-Public Use
  Company Number: DE-PFIZER INC-2020095076

PATIENT
  Sex: Male
  Weight: 3.3 kg

DRUGS (1)
  1. CYTOTEC [Suspect]
     Active Substance: MISOPROSTOL
     Indication: LABOUR INDUCTION
     Dosage: 6DF, DAILY (INSECURE IF EVERY 4 HRS 1/2 OR A WHOLE TABLET, BUT SURELY 6 DF WITHIN 24 HOURS)
     Dates: start: 20160909, end: 20160911

REACTIONS (9)
  - Infection susceptibility increased [Not Recovered/Not Resolved]
  - Abdominal pain [Unknown]
  - Foetal heart rate abnormal [Unknown]
  - Foetal heart rate decreased [Unknown]
  - Diarrhoea neonatal [Unknown]
  - Constipation neonatal [Unknown]
  - Fatigue [Not Recovered/Not Resolved]
  - Foetal exposure during delivery [Unknown]
  - Growing pains [Not Recovered/Not Resolved]
